FAERS Safety Report 8271068 (Version 2)
Quarter: 2013Q2

REPORT INFORMATION
  Report Type: Spontaneous
  Country: US (occurrence: US)
  Receive Date: 20111201
  Receipt Date: 20130416
  Transmission Date: 20140414
  Serious: No
  Sender: FDA-Public Use
  Company Number: US-ELI_LILLY_AND_COMPANY-US201111007745

PATIENT
  Sex: Female

DRUGS (18)
  1. FORTEO [Suspect]
     Indication: OSTEOPOROSIS
     Dosage: 20 UG, QD
     Route: 065
     Dates: start: 20110516
  2. FORTEO [Suspect]
     Dosage: 20 UG, QD
     Route: 065
  3. CLONIDINE [Concomitant]
     Dosage: 0.2 MG, BID
  4. HYDROCHLOROTHIAZIDE [Concomitant]
     Dosage: 25 MG, QD
  5. QUINAPRIL [Concomitant]
     Dosage: 40 MG, QD
  6. KLOR-CON M20 [Concomitant]
     Dosage: UNK, BID
  7. TRICOR [Concomitant]
     Dosage: 145 MG, QD
  8. ECOTRIN [Concomitant]
     Dosage: 81 MG, QD
  9. CALCIUM [Concomitant]
     Dosage: UNK, BID
  10. MULTIVITAMINS [Concomitant]
     Dosage: UNK, BID
  11. SUPER CO-ENZYME Q10 [Concomitant]
     Dosage: 100 MG, QD
  12. OMEGA 3 [Concomitant]
     Dosage: 500 MG, BID
  13. FENTANYL [Concomitant]
     Dosage: 100 MEQ, Q72 HOURS
  14. EXCEDRIN [Concomitant]
     Indication: HEADACHE
     Dosage: UNK, PRN
  15. FLEXERIL [Concomitant]
     Dosage: 5 MG, QD
  16. POTASSIUM [Concomitant]
     Dosage: 20 MEQ, TID
  17. HYDROCODONE [Concomitant]
     Dosage: 10/500
  18. ZOLPIDEM [Concomitant]
     Dosage: 10 MG, QD

REACTIONS (1)
  - No adverse event [Unknown]
